FAERS Safety Report 22331138 (Version 1)
Quarter: 2023Q2

REPORT INFORMATION
  Report Type: Spontaneous
  Country: IR (occurrence: IR)
  Receive Date: 20230517
  Receipt Date: 20230517
  Transmission Date: 20230721
  Serious: Yes (Other)
  Sender: FDA-Public Use
  Company Number: IR-002147023-NVSC2023IR107989

PATIENT
  Age: 32 Year
  Sex: Female

DRUGS (1)
  1. GILENYA [Suspect]
     Active Substance: FINGOLIMOD HYDROCHLORIDE
     Indication: Relapsing-remitting multiple sclerosis
     Dosage: UNK (FIVE TIMES A WEEK BY TAKING A SINGLE CAPSULE)
     Route: 065
     Dates: start: 2014, end: 2021

REACTIONS (7)
  - Bladder cancer [Recovered/Resolved]
  - Haematuria [Recovered/Resolved]
  - Night sweats [Recovered/Resolved]
  - Haemorrhage urinary tract [Recovered/Resolved]
  - Bladder pain [Recovered/Resolved]
  - B-cell lymphoma stage I [Recovered/Resolved]
  - Inappropriate schedule of product administration [Unknown]
